FAERS Safety Report 10747938 (Version 2)
Quarter: 2015Q1

REPORT INFORMATION
  Report Type: Spontaneous
  Country: DE (occurrence: DE)
  Receive Date: 20150129
  Receipt Date: 20150209
  Transmission Date: 20150721
  Serious: Yes (Hospitalization, Other)
  Sender: FDA-Public Use
  Company Number: DE-JNJFOC-20150112551

PATIENT
  Age: 62 Year
  Sex: Male
  Weight: 80 kg

DRUGS (5)
  1. VERAPAMIL [Concomitant]
     Active Substance: VERAPAMIL HYDROCHLORIDE
     Indication: ATRIAL FIBRILLATION
     Route: 065
     Dates: start: 201303
  2. XARELTO [Suspect]
     Active Substance: RIVAROXABAN
     Indication: ATRIAL FIBRILLATION
     Route: 048
     Dates: start: 20140616, end: 20141211
  3. XARELTO [Suspect]
     Active Substance: RIVAROXABAN
     Indication: CEREBROVASCULAR ACCIDENT PROPHYLAXIS
     Route: 048
     Dates: start: 20140616, end: 20141211
  4. NOVODIGAL [Concomitant]
     Active Substance: .BETA.-ACETYLDIGOXIN
     Indication: ATRIAL FIBRILLATION
     Route: 065
     Dates: start: 201406
  5. SIMVASTATIN. [Concomitant]
     Active Substance: SIMVASTATIN
     Indication: HYPERLIPIDAEMIA
     Route: 065
     Dates: start: 201202

REACTIONS (2)
  - Drug ineffective [Unknown]
  - Embolic cerebral infarction [Unknown]

NARRATIVE: CASE EVENT DATE: 20141210
